FAERS Safety Report 12965059 (Version 1)
Quarter: 2016Q4

REPORT INFORMATION
  Report Type: Report from Study
  Country: US (occurrence: US)
  Receive Date: 20161122
  Receipt Date: 20161122
  Transmission Date: 20170207
  Serious: Yes (Hospitalization, Other)
  Sender: FDA-Public Use
  Company Number: US-INDIVIOR LIMITED-INDV-096556-2016

PATIENT
  Age: 49 Year
  Sex: Female
  Weight: 47.62 kg

DRUGS (3)
  1. LEXAPRO [Concomitant]
     Active Substance: ESCITALOPRAM OXALATE
     Indication: PRODUCT USED FOR UNKNOWN INDICATION
     Dosage: 20MG, UNK
     Route: 065
  2. SUBOXONE [Suspect]
     Active Substance: BUPRENORPHINE HYDROCHLORIDE\NALOXONE HYDROCHLORIDE
     Indication: DRUG DEPENDENCE
     Dosage: 4 MG, TID
     Route: 060
     Dates: start: 2014
  3. DILANTIN [Concomitant]
     Active Substance: PHENYTOIN
     Indication: SEIZURE
     Dosage: UNK
     Route: 065

REACTIONS (17)
  - Epilepsy [Recovered/Resolved]
  - Fluid intake reduced [Recovered/Resolved]
  - Vomiting [Recovered/Resolved]
  - Drug withdrawal syndrome [Recovered/Resolved]
  - Product preparation error [Unknown]
  - Suicide attempt [Recovered/Resolved]
  - Neck pain [Recovered/Resolved]
  - Asthenia [Recovered/Resolved]
  - Abdominal pain upper [Recovered/Resolved]
  - Drug dose omission [Unknown]
  - Decreased appetite [Unknown]
  - Intentional product misuse [Unknown]
  - Substance abuse [Recovered/Resolved]
  - Intentional underdose [Recovered/Resolved]
  - Back pain [Recovered/Resolved]
  - Suicidal ideation [Recovered/Resolved]
  - Malaise [Unknown]

NARRATIVE: CASE EVENT DATE: 2014
